FAERS Safety Report 17871607 (Version 1)
Quarter: 2020Q2

REPORT INFORMATION
  Report Type: Spontaneous
  Country: CO (occurrence: CO)
  Receive Date: 20200608
  Receipt Date: 20200608
  Transmission Date: 20200714
  Serious: Yes (Death, Hospitalization, Other)
  Sender: FDA-Public Use
  Company Number: CO-PFIZER INC-2020221988

PATIENT
  Sex: Female

DRUGS (1)
  1. REAMPLA [Suspect]
     Active Substance: PALBOCICLIB
     Indication: BREAST CANCER
     Dosage: 125 MG

REACTIONS (3)
  - Urinary tract infection [Unknown]
  - Death [Fatal]
  - Neutropenia [Unknown]
